FAERS Safety Report 15698831 (Version 3)
Quarter: 2019Q1

REPORT INFORMATION
  Report Type: Spontaneous
  Country: US (occurrence: US)
  Receive Date: 20181207
  Receipt Date: 20190104
  Transmission Date: 20190417
  Serious: No
  Sender: FDA-Public Use
  Company Number: US-PFIZER INC-2018499507

PATIENT
  Age: 26 Year
  Sex: Female

DRUGS (2)
  1. LYRICA [Suspect]
     Active Substance: PREGABALIN
     Indication: NEUROPATHY PERIPHERAL
     Dosage: 300 MG, 3X/DAY
     Route: 048
  2. LYRICA [Suspect]
     Active Substance: PREGABALIN
     Dosage: 600 MG, 3X/DAY(2 OF THEM )
     Route: 048

REACTIONS (4)
  - Drug effect incomplete [Unknown]
  - Intentional overdose [Unknown]
  - Product dose omission [Unknown]
  - Prescribed overdose [Unknown]
